FAERS Safety Report 5914743-1 (Version None)
Quarter: 2008Q4

REPORT INFORMATION
  Report Type: 
  Country: None (occurrence: None)
  Receive Date: 20081010
  Receipt Date: 20081009
  Transmission Date: 20090506
  Serious: Yes (Other)
  Sender: FDA-Public Use
  Company Number: BR-BRISTOL-MYERS SQUIBB COMPANY-14250013

PATIENT
  Sex: Female

DRUGS (4)
  1. COUMADIN [Suspect]
     Indication: MITRAL VALVE STENOSIS
     Route: 048
     Dates: start: 20020101
  2. HYGROTON [Suspect]
  3. DIOVAN [Concomitant]
  4. PROPRANOLOL [Concomitant]

REACTIONS (4)
  - HAEMOGLOBIN INCREASED [None]
  - INTERNATIONAL NORMALISED RATIO INCREASED [None]
  - PULMONARY OEDEMA [None]
  - RED BLOOD CELLS URINE POSITIVE [None]
